FAERS Safety Report 24023237 (Version 4)
Quarter: 2024Q2

REPORT INFORMATION
  Report Type: Spontaneous
  Country: FI (occurrence: FI)
  Receive Date: 20240627
  Receipt Date: 20240627
  Transmission Date: 20240716
  Serious: No
  Sender: FDA-Public Use
  Company Number: FI-ROCHE-3565518

PATIENT
  Age: 67 Year
  Sex: Male

DRUGS (2)
  1. VABYSMO [Suspect]
     Active Substance: FARICIMAB\FARICIMAB-SVOA
     Indication: Diabetic retinal oedema
     Dosage: FOR BOTH EYES 4 X VABYSMO 4 WEEKS -} VISUS 0.5/0.16 (INJECTION PAUSED FOR 6 WEEKS)?3 X VABYSMO 4 WEE
     Route: 065
     Dates: start: 20230828
  2. AVASTIN [Suspect]
     Active Substance: BEVACIZUMAB
     Indication: Diabetic retinal oedema
     Route: 065

REACTIONS (4)
  - Iritis [Recovered/Resolved]
  - Intraocular pressure increased [Recovered/Resolved]
  - Off label use [Unknown]
  - Off label use [Unknown]

NARRATIVE: CASE EVENT DATE: 20240318
